FAERS Safety Report 7018731-6 (Version None)
Quarter: 2010Q3

REPORT INFORMATION
  Report Type: 
  Country: None (occurrence: None)
  Receive Date: 20100928
  Receipt Date: 20100922
  Transmission Date: 20110219
  Serious: Yes (Hospitalization)
  Sender: FDA-Public Use
  Company Number: FR-BRISTOL-MYERS SQUIBB COMPANY-15302417

PATIENT
  Age: 67 Year
  Sex: Female

DRUGS (14)
  1. BRISTOPEN CAPS 500 MG [Suspect]
     Indication: ERYSIPELAS
     Route: 048
     Dates: start: 20100630, end: 20100702
  2. METFORMIN HCL [Suspect]
     Indication: TYPE 2 DIABETES MELLITUS
     Dosage: INSULIN-REQUIRING
     Route: 048
     Dates: end: 20100707
  3. AUGMENTIN '125' [Suspect]
     Indication: ERYSIPELAS
     Dosage: STRENGTH-500 MG/125 MG .FILM-COATED TABLET
     Route: 048
     Dates: start: 20100702, end: 20100707
  4. ALTEIS [Suspect]
     Indication: HYPERTENSION
     Dosage: 3 FILM-COATED TABLETS
     Route: 048
     Dates: end: 20100707
  5. AMAREL [Suspect]
     Indication: TYPE 2 DIABETES MELLITUS
     Dosage: 1 TABLET DAILY, INSULIN-REQUIRING
     Route: 048
     Dates: end: 20100707
  6. LEVEMIR [Suspect]
     Indication: TYPE 2 DIABETES MELLITUS
     Dosage: YEARS
     Dates: end: 20100705
  7. VASTEN TABS 40 MG [Concomitant]
  8. FLUDROCORTISONE [Concomitant]
  9. HYDROCORTISONE [Concomitant]
     Dosage: INTIAL INCREASED FROM 30 MG/DAILY TO 50 MG/DAILY + DOSAGE DECREASED TO 30 MG/DAILY
  10. BONIVA [Concomitant]
     Dosage: SOLUTION FOR INJECTION IN PRE-FILLED SYRINGE
  11. OROCAL D3 [Concomitant]
     Dosage: 1DF=500 MG/200 IU .VITAMIN, TABLET TO SUCK
  12. AERIUS [Concomitant]
  13. EFFERALGAN [Concomitant]
  14. LEVOTHYROXINE SODIUM [Concomitant]
     Dosage: SCORED TABLET.

REACTIONS (10)
  - ACCIDENTAL OVERDOSE [None]
  - CONVULSION [None]
  - DEHYDRATION [None]
  - DIARRHOEA [None]
  - HYPERKALAEMIA [None]
  - HYPOGLYCAEMIA [None]
  - HYPONATRAEMIA [None]
  - LACTIC ACIDOSIS [None]
  - RENAL FAILURE ACUTE [None]
  - VOMITING [None]
